FAERS Safety Report 24789229 (Version 1)
Quarter: 2024Q4

REPORT INFORMATION
  Report Type: Spontaneous
  Country: CN (occurrence: CN)
  Receive Date: 20241230
  Receipt Date: 20241230
  Transmission Date: 20250115
  Serious: Yes (Other)
  Sender: PFIZER
  Company Number: CN-PFIZER INC-PV202400168614

PATIENT
  Age: 36 Year
  Sex: Female
  Weight: 45 kg

DRUGS (2)
  1. METHOTREXATE SODIUM [Suspect]
     Active Substance: METHOTREXATE SODIUM
     Indication: Ectopic pregnancy
     Dosage: 18 MG, 1X/DAY
     Route: 030
     Dates: start: 20240912, end: 20240916
  2. METHOTREXATE SODIUM [Suspect]
     Active Substance: METHOTREXATE SODIUM
     Dosage: 18 MG, 1X/DAY
     Route: 030
     Dates: start: 20240918, end: 20240923

REACTIONS (4)
  - Intra-abdominal haemorrhage [Unknown]
  - Platelet count decreased [Unknown]
  - Abdominal mass [Unknown]
  - Off label use [Unknown]

NARRATIVE: CASE EVENT DATE: 20240912
